FAERS Safety Report 18213473 (Version 1)
Quarter: 2020Q3

REPORT INFORMATION
  Report Type: Spontaneous
  Country: US (occurrence: US)
  Receive Date: 20200831
  Receipt Date: 20200831
  Transmission Date: 20201103
  Serious: Yes (Hospitalization)
  Sender: FDA-Public Use
  Company Number: None

PATIENT
  Age: 72 Year
  Sex: Male

DRUGS (1)
  1. HYDRALAZINE  (HYDRALAZINE HCL 50MG/ML INJ) [Suspect]
     Active Substance: HYDRALAZINE HYDROCHLORIDE
     Indication: HYPERTENSION
     Dates: start: 20180628, end: 20200707

REACTIONS (2)
  - Acute kidney injury [None]
  - Vasculitis [None]

NARRATIVE: CASE EVENT DATE: 20200707
